FAERS Safety Report 4505293-8 (Version None)
Quarter: 2004Q4

REPORT INFORMATION
  Report Type: 
  Country: None (occurrence: None)
  Receive Date: 20041118
  Receipt Date: 20041118
  Transmission Date: 20050328
  Serious: No
  Sender: FDA-Public Use
  Company Number: None

PATIENT
  Sex: Female

DRUGS (8)
  1. BENZOCAINE [Suspect]
     Indication: GALLBLADDER CANCER
     Dosage: 1 SPRAY Q6H TOP
     Route: 061
     Dates: start: 20040905
  2. LOTREL [Concomitant]
  3. PAXIL [Concomitant]
  4. SYNTHROID [Concomitant]
  5. XANAX [Concomitant]
  6. CIPRO [Concomitant]
  7. COPD [Concomitant]
  8. OA [Concomitant]

REACTIONS (6)
  - ACQUIRED METHAEMOGLOBINAEMIA [None]
  - FLUID IMBALANCE [None]
  - OXYGEN SATURATION DECREASED [None]
  - POST PROCEDURAL COMPLICATION [None]
  - RESPIRATORY TRACT CONGESTION [None]
  - WHEEZING [None]
